FAERS Safety Report 16545506 (Version 2)
Quarter: 2019Q3

REPORT INFORMATION
  Report Type: Spontaneous
  Country: US (occurrence: US)
  Receive Date: 20190709
  Receipt Date: 20190910
  Transmission Date: 20191004
  Serious: Yes (Hospitalization, Other)
  Sender: FDA-Public Use
  Company Number: US-BAYER-2019-126467

PATIENT
  Age: 87 Year
  Sex: Female

DRUGS (2)
  1. ARTHRITIS PAIN FORMULA [ACETYLSALICYLIC ACID;ALUMINIUM HYDROXIDE;M [Concomitant]
  2. ALEVE [Suspect]
     Active Substance: NAPROXEN SODIUM
     Dosage: UNK

REACTIONS (2)
  - Haemoglobin decreased [None]
  - Gastrointestinal haemorrhage [Unknown]

NARRATIVE: CASE EVENT DATE: 201905
